FAERS Safety Report 8796589 (Version 2)
Quarter: 2015Q2

REPORT INFORMATION
  Report Type: Report from Study
  Country: US (occurrence: US)
  Receive Date: 20120920
  Receipt Date: 20150409
  Transmission Date: 20150821
  Serious: Yes (Death)
  Sender: FDA-Public Use
  Company Number: US-ROCHE-1101891

PATIENT
  Age: 62 Year
  Sex: Male

DRUGS (12)
  1. SPIRIVA [Concomitant]
     Active Substance: TIOTROPIUM BROMIDE MONOHYDRATE
     Route: 065
  2. TAXOL [Concomitant]
     Active Substance: PACLITAXEL
  3. PARAPLATIN [Concomitant]
     Active Substance: CARBOPLATIN
  4. NEULASTA [Concomitant]
     Active Substance: PEGFILGRASTIM
     Route: 065
  5. COSOPT [Concomitant]
     Active Substance: DORZOLAMIDE HYDROCHLORIDE\TIMOLOL MALEATE
     Route: 065
  6. ALDARA [Concomitant]
     Active Substance: IMIQUIMOD
     Route: 065
  7. LEVAQUIN [Concomitant]
     Active Substance: LEVOFLOXACIN
  8. LOTENSIN (UNITED STATES) [Concomitant]
     Route: 065
  9. AVASTIN [Suspect]
     Active Substance: BEVACIZUMAB
     Indication: LUNG NEOPLASM MALIGNANT
  10. AVASTIN [Suspect]
     Active Substance: BEVACIZUMAB
     Indication: METASTASES TO BONE
     Route: 065
     Dates: start: 20060207
  11. ADVAIR HFA [Concomitant]
     Active Substance: FLUTICASONE PROPIONATE\SALMETEROL XINAFOATE
     Route: 065
  12. ZOMETA [Concomitant]
     Active Substance: ZOLEDRONIC ACID

REACTIONS (13)
  - Pain [Recovered/Resolved]
  - Fatigue [Unknown]
  - Musculoskeletal chest pain [Unknown]
  - Disease progression [Unknown]
  - Nausea [Recovered/Resolved]
  - Bronchitis [Unknown]
  - Death [Fatal]
  - Alopecia [Unknown]
  - Lung disorder [Unknown]
  - Back pain [Unknown]
  - Neuropathy peripheral [Unknown]
  - Rib deformity [Unknown]
  - Breath sounds abnormal [Unknown]

NARRATIVE: CASE EVENT DATE: 20060724
